FAERS Safety Report 24292803 (Version 1)
Quarter: 2024Q3

REPORT INFORMATION
  Report Type: Spontaneous
  Country: US (occurrence: None)
  Receive Date: 20240906
  Receipt Date: 20240906
  Transmission Date: 20241017
  Serious: No
  Sender: DOMPE FARMACEUTICI
  Company Number: US-FARMAPROD-202308-202310-3135

PATIENT
  Sex: Female

DRUGS (3)
  1. OXERVATE [Suspect]
     Active Substance: CENEGERMIN-BKBJ
     Indication: Neurotrophic keratopathy
     Route: 047
     Dates: start: 20231011
  2. OXERVATE [Suspect]
     Active Substance: CENEGERMIN-BKBJ
  3. ZICAM NASAL SWAB [Concomitant]

REACTIONS (2)
  - Sinus operation [Unknown]
  - Oropharyngeal pain [Unknown]
